FAERS Safety Report 12247691 (Version 1)
Quarter: 2016Q2

REPORT INFORMATION
  Report Type: Spontaneous
  Country: US (occurrence: US)
  Receive Date: 20160408
  Receipt Date: 20160408
  Transmission Date: 20160815
  Serious: No
  Sender: FDA-Public Use
  Company Number: US-HOSPIRA-2880842

PATIENT
  Age: 21 Year
  Sex: Male

DRUGS (1)
  1. PROPOFOL. [Suspect]
     Active Substance: PROPOFOL
     Indication: ANAESTHESIA PROCEDURE
     Route: 041
     Dates: start: 20150516

REACTIONS (5)
  - Poor quality drug administered [Unknown]
  - Delayed recovery from anaesthesia [Recovered/Resolved]
  - Product contamination physical [Unknown]
  - Disorientation [Unknown]
  - Somnolence [Unknown]

NARRATIVE: CASE EVENT DATE: 2015
